FAERS Safety Report 8343525-9 (Version None)
Quarter: 2012Q2

REPORT INFORMATION
  Report Type: 
  Country: None (occurrence: None)
  Receive Date: 20120508
  Receipt Date: 20120427
  Transmission Date: 20120825
  Serious: Yes (Hospitalization)
  Sender: FDA-Public Use
  Company Number: US-BAYER-2012-041594

PATIENT
  Age: 75 Year
  Sex: Male

DRUGS (6)
  1. METFORMIN HCL [Suspect]
     Dosage: DAILY DOSE 2000 MG
  2. ASPIRIN [Suspect]
  3. GLYBURIDE [Concomitant]
     Dosage: DAILY DOSE 10 MG
  4. SAXAGLIPTIN [Suspect]
     Indication: TYPE 2 DIABETES MELLITUS
     Dosage: UNK
     Dates: start: 20110324, end: 20110517
  5. CLOPIDOGREL BISULFATE [Suspect]
  6. ANGIOTENSIN II ANTAGONISTS AND DIURETICS [Concomitant]

REACTIONS (6)
  - HAEMATEMESIS [None]
  - FAECES DISCOLOURED [None]
  - ASTHENIA [None]
  - GASTROINTESTINAL HAEMORRHAGE [None]
  - GASTRIC ULCER [None]
  - HAEMORRHAGIC ANAEMIA [None]
